FAERS Safety Report 5023822-5 (Version None)
Quarter: 2006Q2

REPORT INFORMATION
  Report Type: 
  Country: None (occurrence: None)
  Receive Date: 20060606
  Receipt Date: 20060530
  Transmission Date: 20061013
  Serious: Yes (Other)
  Sender: FDA-Public Use
  Company Number: 200613441BWH

PATIENT
  Sex: Male

DRUGS (4)
  1. LEVITRA [Suspect]
     Indication: ERECTILE DYSFUNCTION
     Dosage: 20 MG, ONCE ORAL, 10 MG, ONCE; ORAL
     Route: 048
     Dates: start: 20060101
  2. LEVITRA [Suspect]
     Indication: ERECTILE DYSFUNCTION
     Dosage: 20 MG, ONCE ORAL, 10 MG, ONCE; ORAL
     Route: 048
     Dates: start: 20060101
  3. LEVITRA [Suspect]
     Indication: ERECTILE DYSFUNCTION
     Dosage: 20 MG, ONCE ORAL, 10 MG, ONCE; ORAL
     Route: 048
     Dates: start: 20060101
  4. LEVITRA [Suspect]
     Indication: ERECTILE DYSFUNCTION
     Dosage: 20 MG, ONCE ORAL, 10 MG, ONCE; ORAL
     Route: 048
     Dates: start: 20060101

REACTIONS (8)
  - BLINDNESS [None]
  - DRUG INEFFECTIVE [None]
  - EYE PAIN [None]
  - HEADACHE [None]
  - INCORRECT DOSE ADMINISTERED [None]
  - OPTIC ISCHAEMIC NEUROPATHY [None]
  - PHARMACEUTICAL PRODUCT COMPLAINT [None]
  - VISION BLURRED [None]
